FAERS Safety Report 7880774-8 (Version None)
Quarter: 2011Q4

REPORT INFORMATION
  Report Type: 
  Country: None (occurrence: None)
  Receive Date: 20111101
  Receipt Date: 20111021
  Transmission Date: 20120403
  Serious: Yes (Hospitalization, Disabling, Other)
  Sender: FDA-Public Use
  Company Number: PHHY2009JP31943

PATIENT
  Sex: Male

DRUGS (7)
  1. OMEPRAZOLE [Concomitant]
     Dosage: 20 MG, UNK
     Dates: start: 20090609
  2. TASIGNA [Suspect]
     Dosage: 800 MG, BID
     Route: 048
     Dates: start: 20090710, end: 20090724
  3. PREDNISOLONE [Concomitant]
     Dosage: 50MG, 40MG, 30MG, 25MG
     Route: 048
     Dates: start: 20090617, end: 20090724
  4. SELBEX [Concomitant]
     Dosage: 150 MG, UNK
     Route: 048
     Dates: start: 20090508
  5. TASIGNA [Suspect]
     Indication: CHRONIC MYELOID LEUKAEMIA
     Dosage: 800 MG BID
     Route: 048
     Dates: start: 20090611, end: 20090701
  6. SULFAMETHOXAZOLE [Concomitant]
     Indication: PROPHYLAXIS
     Dosage: 1 DF, UNK
     Route: 048
     Dates: start: 20090526
  7. PREDNISOLONE [Concomitant]
     Indication: INTERSTITIAL LUNG DISEASE
     Dosage: 60 MG, UNK
     Route: 048
     Dates: start: 20090602, end: 20090616

REACTIONS (8)
  - HAEMOPTYSIS [None]
  - CONDITION AGGRAVATED [None]
  - HAEMOGLOBIN DECREASED [None]
  - PLATELET COUNT DECREASED [None]
  - VENTRICULAR EXTRASYSTOLES [None]
  - NEOPLASM MALIGNANT [None]
  - BLOOD BILIRUBIN INCREASED [None]
  - INTERSTITIAL LUNG DISEASE [None]
